FAERS Safety Report 9525424 (Version 2)
Quarter: 2014Q1

REPORT INFORMATION
  Report Type: Spontaneous
  Country: DE (occurrence: DE)
  Receive Date: 20130916
  Receipt Date: 20140128
  Transmission Date: 20141002
  Serious: Yes (Other)
  Sender: FDA-Public Use
  Company Number: DE-JNJFOC-20130907786

PATIENT
  Sex: Female

DRUGS (3)
  1. XARELTO [Suspect]
     Indication: CEREBROVASCULAR ACCIDENT PROPHYLAXIS
     Route: 048
  2. XARELTO [Suspect]
     Indication: ATRIAL FIBRILLATION
     Route: 048
  3. XARELTO [Suspect]
     Indication: ANTICOAGULANT THERAPY
     Route: 048

REACTIONS (6)
  - Haemorrhage subcutaneous [Unknown]
  - Hyperhidrosis [Unknown]
  - Visual impairment [Unknown]
  - Skin discolouration [Unknown]
  - Asthenia [Unknown]
  - Nausea [Unknown]
